FAERS Safety Report 10137047 (Version 1)
Quarter: 2014Q2

REPORT INFORMATION
  Report Type: Report from Study
  Country: DE (occurrence: None)
  Receive Date: 20140425
  Receipt Date: 20140425
  Transmission Date: 20141212
  Serious: Yes (Hospitalization, Other)
  Sender: FDA-Public Use
  Company Number: 2014-19412

PATIENT
  Age: 78 Year
  Sex: Female

DRUGS (4)
  1. EYLEA [Suspect]
     Indication: AGE-RELATED MACULAR DEGENERATION
     Dosage: 2 MG MILLIGRAM(S), EVERY MONTH
     Route: 031
  2. ASS [Suspect]
     Route: 048
     Dates: end: 2014
  3. BISOPROLOL [Concomitant]
  4. ENALAPRIL (ENALAPRIL) [Concomitant]

REACTIONS (4)
  - Facial paresis [None]
  - Cerebrovascular accident [None]
  - Cataract [None]
  - VIth nerve paralysis [None]
